FAERS Safety Report 8919347 (Version 2)
Quarter: 2012Q4

REPORT INFORMATION
  Report Type: Report from Study
  Country: JP (occurrence: JP)
  Receive Date: 20121121
  Receipt Date: 20121217
  Transmission Date: 20130627
  Serious: Yes (Other)
  Sender: FDA-Public Use
  Company Number: JP-VERTEX PHARMACEUTICAL INC.-AE-2012-005500

PATIENT
  Age: 50 Year
  Sex: Male

DRUGS (20)
  1. VX-950 (TELAPREVIR) [Suspect]
     Indication: CHRONIC HEPATITIS C
     Dosage: 2250 mg, qd
     Route: 048
     Dates: start: 20120105, end: 20120330
  2. RIBAVIRIN [Suspect]
     Indication: CHRONIC HEPATITIS C
     Dosage: 800 mg, qd
     Route: 048
     Dates: start: 20120105, end: 20120223
  3. RIBAVIRIN [Suspect]
     Dosage: 600 mg, qd
     Route: 048
     Dates: start: 20120224, end: 20120308
  4. RIBAVIRIN [Suspect]
     Dosage: 400 mg, qd
     Route: 048
     Dates: start: 20120309, end: 20120524
  5. RIBAVIRIN [Suspect]
     Dosage: 600 mg, qd
     Route: 048
     Dates: start: 20120525, end: 20120620
  6. PEGINTERFERON ALFA-2B [Suspect]
     Indication: CHRONIC HEPATITIS C
     Dosage: 100 ?g, weekly
     Route: 058
     Dates: start: 20120105, end: 20120302
  7. PEGINTERFERON ALFA-2B [Suspect]
     Dosage: 80 ?g, weekly
     Route: 058
     Dates: start: 20120309, end: 20120620
  8. RINDERON                           /00008501/ [Concomitant]
     Route: 061
     Dates: start: 20120110
  9. ALESION [Concomitant]
     Route: 048
     Dates: start: 20120110
  10. ALESION [Concomitant]
     Dosage: UNK
     Route: 048
     Dates: start: 20120112
  11. ALESION [Concomitant]
     Dosage: UNK
     Route: 048
     Dates: start: 20120213
  12. ALESION [Concomitant]
     Dosage: UNK
     Route: 048
     Dates: start: 20120116
  13. MYSER 0..5% [Concomitant]
     Route: 061
     Dates: start: 20120110
  14. DERMOVATE [Concomitant]
     Route: 061
     Dates: start: 20120112
  15. ATARAX-P [Concomitant]
     Route: 048
     Dates: start: 20120112
  16. PREDNISOLONE [Concomitant]
     Route: 048
     Dates: start: 20120113
  17. PREDNISOLONE [Concomitant]
     Dosage: UNK
     Route: 048
     Dates: start: 20120116
  18. MUCOSTA [Concomitant]
     Dosage: 100 mg, UNK
     Route: 048
     Dates: start: 20120113, end: 20120119
  19. MUCOSTA [Concomitant]
     Dosage: UNK
     Route: 048
     Dates: start: 20120116
  20. POLARAMINE [Concomitant]
     Dosage: 2 mg, qd
     Route: 048
     Dates: start: 20120116, end: 20120119

REACTIONS (3)
  - Intraocular pressure increased [Recovered/Resolved]
  - Haemoglobin decreased [Not Recovered/Not Resolved]
  - Haemoglobin decreased [Not Recovered/Not Resolved]
